FAERS Safety Report 8772757 (Version 3)
Quarter: 2013Q3

REPORT INFORMATION
  Report Type: Report from Study
  Country: FR (occurrence: FR)
  Receive Date: 20120907
  Receipt Date: 20130903
  Transmission Date: 20140515
  Serious: Yes (Hospitalization)
  Sender: FDA-Public Use
  Company Number: FR-009507513-1209FRA001531

PATIENT
  Age: 75 Year
  Sex: Female
  Weight: 80 kg

DRUGS (17)
  1. SITAGLIPTIN PHOSPHATE [Suspect]
     Indication: TYPE 2 DIABETES MELLITUS
     Dosage: 100 MG, QD
     Route: 048
     Dates: start: 20100609, end: 20100720
  2. SITAGLIPTIN PHOSPHATE [Suspect]
     Dosage: 100 MG, QD
     Route: 048
     Dates: start: 20101001, end: 20120120
  3. HUMALOG MIX [Suspect]
     Indication: TYPE 1 DIABETES MELLITUS
     Dosage: UNK IU, QD
     Route: 058
     Dates: start: 201201, end: 20120215
  4. HUMALOG MIX [Suspect]
     Dosage: 44 IU, QD
     Route: 058
     Dates: start: 20120215, end: 20120501
  5. HUMALOG MIX [Suspect]
     Dosage: 46 IU, UNK
     Route: 058
     Dates: start: 20120501, end: 20120808
  6. HUMALOG MIX [Suspect]
     Dosage: 44 IU, UNK
     Route: 058
     Dates: start: 20120808, end: 20121117
  7. HUMALOG MIX [Suspect]
     Dosage: 52 IU, UNK
     Route: 058
     Dates: start: 20121117, end: 20130523
  8. HUMALOG MIX [Suspect]
     Dosage: 25 IU, UNK
     Dates: start: 20130523
  9. METFORMIN [Concomitant]
     Dosage: 3 DF, QD
     Route: 048
     Dates: start: 20100720, end: 20101001
  10. METFORMIN [Concomitant]
     Dosage: 3 DF, QD
     Route: 048
     Dates: start: 20110907, end: 20121117
  11. METFORMIN [Concomitant]
     Dosage: 3 DF, QD
     Route: 048
     Dates: start: 20130523, end: 20130820
  12. LEVEMIR [Concomitant]
     Dosage: 8 IU, QD
     Dates: start: 20110603, end: 20110907
  13. LEVEMIR [Concomitant]
     Dosage: 6 IU, QD
     Dates: start: 20110907, end: 20110927
  14. LEVEMIR [Concomitant]
     Dosage: 46 IU, QD
     Dates: start: 20111227, end: 20120120
  15. LEVEMIR [Concomitant]
     Dosage: 44 IU, QD
     Dates: start: 20120120, end: 20120501
  16. MONO-TILDIEM [Concomitant]
  17. EUPRESSYL [Concomitant]
     Dosage: UNK

REACTIONS (1)
  - Hypoglycaemia [Recovered/Resolved]
